FAERS Safety Report 9500609 (Version 1)
Quarter: 2013Q3

REPORT INFORMATION
  Report Type: Spontaneous
  Country: US (occurrence: US)
  Receive Date: 20130905
  Receipt Date: 20130905
  Transmission Date: 20140515
  Serious: No
  Sender: FDA-Public Use
  Company Number: US-TEVA-430368USA

PATIENT
  Sex: Female

DRUGS (1)
  1. PARAGARD 380A [Suspect]
     Route: 015

REACTIONS (3)
  - Vaginal disorder [Unknown]
  - Skin bacterial infection [Unknown]
  - Fungal skin infection [Unknown]
